FAERS Safety Report 9637773 (Version 1)
Quarter: 2013Q4

REPORT INFORMATION
  Report Type: Report from Study
  Country: CA (occurrence: CA)
  Receive Date: 20131022
  Receipt Date: 20131022
  Transmission Date: 20140711
  Serious: Yes (Death, Hospitalization)
  Sender: FDA-Public Use
  Company Number: CA-SA-2013SA104873

PATIENT
  Age: 73 Year
  Sex: Male

DRUGS (4)
  1. DOCETAXEL [Suspect]
     Indication: BLADDER CANCER
     Route: 042
     Dates: start: 20130423, end: 20130702
  2. INVESTIGATIONAL DRUG [Suspect]
     Indication: BLADDER CANCER
     Dosage: FORM: LIQUID
     Route: 042
     Dates: start: 20130423, end: 20130709
  3. STEMETIL [Concomitant]
     Dates: start: 20130423
  4. DEXAMETHASONE [Concomitant]
     Dates: start: 20130701

REACTIONS (3)
  - Intestinal perforation [Fatal]
  - Interstitial lung disease [Unknown]
  - Sepsis [Unknown]
